FAERS Safety Report 10213412 (Version 1)
Quarter: 2014Q2

REPORT INFORMATION
  Report Type: Spontaneous
  Country: JP (occurrence: None)
  Receive Date: 20140529
  Receipt Date: 20140529
  Transmission Date: 20141212
  Serious: Yes (Hospitalization)
  Sender: FDA-Public Use
  Company Number: FK201401937

PATIENT
  Age: 63 Year
  Sex: Female

DRUGS (5)
  1. METHOTREXATE [Suspect]
     Indication: RHEUMATOID ARTHRITIS
  2. TOCILIZUMAB [Suspect]
     Indication: RHEUMATOID ARTHRITIS
  3. PREDNISOLONE (PREDNISOLONE) [Concomitant]
  4. ETANERCEPT [Concomitant]
  5. ADALIMUMAB [Concomitant]

REACTIONS (8)
  - Encephalitis autoimmune [None]
  - Infection [None]
  - Pneumonia aspiration [None]
  - Disease recurrence [None]
  - Encephalopathy [None]
  - Toxicity to various agents [None]
  - Central nervous system lesion [None]
  - Cerebral atrophy [None]
